FAERS Safety Report 13870860 (Version 2)
Quarter: 2017Q3

REPORT INFORMATION
  Report Type: Report from Study
  Country: BR (occurrence: BR)
  Receive Date: 20170816
  Receipt Date: 20170817
  Transmission Date: 20171127
  Serious: Yes (Other)
  Sender: FDA-Public Use
  Company Number: PHHY2017BR119178

PATIENT
  Age: 75 Year
  Sex: Female
  Weight: 65 kg

DRUGS (1)
  1. FORASEQ [Suspect]
     Active Substance: BUDESONIDE\FORMOTEROL FUMARATE
     Indication: ASTHMA
     Dosage: 1 DF, BID (ONE IN MORNING AND ONE AT NIGHT)
     Route: 048
     Dates: start: 20150108

REACTIONS (10)
  - Anxiety [Unknown]
  - Memory impairment [Unknown]
  - Asphyxia [Unknown]
  - Nervousness [Unknown]
  - Stress [Unknown]
  - Cough [Recovering/Resolving]
  - Hypersensitivity [Unknown]
  - Dyspnoea [Unknown]
  - Drug dependence [Unknown]
  - Hypoacusis [Unknown]
